FAERS Safety Report 7361582-3 (Version None)
Quarter: 2011Q1

REPORT INFORMATION
  Report Type: 
  Country: None (occurrence: None)
  Receive Date: 20110318
  Receipt Date: 20110315
  Transmission Date: 20110831
  Serious: Yes (Hospitalization)
  Sender: FDA-Public Use
  Company Number: NL-PFIZER INC-2011057352

PATIENT
  Age: 46 Year
  Sex: Female

DRUGS (9)
  1. FENTANYL [Suspect]
     Dosage: UNK
  2. PROMETHAZINE [Suspect]
     Dosage: 25 MG, UNK
  3. LORAZEPAM [Suspect]
     Dosage: 1 MG, UNK
  4. FLUVOXAMINE [Suspect]
     Dosage: 25 MG, UNK
  5. OXYCODONE [Suspect]
     Dosage: UNK
  6. GABAPENTIN [Suspect]
     Dosage: UNK
  7. NALTREXONE [Suspect]
     Indication: ALCOHOLISM
     Dosage: 50 MG, UNK
  8. VENLAFAXINE HCL [Suspect]
     Dosage: 37.5 MG, UNK
  9. DIAZEPAM [Suspect]
     Dosage: 2 MG, UNK

REACTIONS (6)
  - DRUG DEPENDENCE [None]
  - ASTHENIA [None]
  - HERNIA [None]
  - DEPRESSION [None]
  - INSOMNIA [None]
  - EUPHORIC MOOD [None]
